FAERS Safety Report 6408649-1 (Version None)
Quarter: 2009Q4

REPORT INFORMATION
  Report Type: 
  Country: None (occurrence: None)
  Receive Date: 20091019
  Receipt Date: 20090618
  Transmission Date: 20100525
  Serious: Yes (Other)
  Sender: FDA-Public Use
  Company Number: CIP09001633

PATIENT
  Sex: Female

DRUGS (1)
  1. OPTINATE (RISEDRONATE SODIUM) TABLET, 75MG [Suspect]
     Dosage: ORAL
     Route: 048

REACTIONS (2)
  - DIZZINESS [None]
  - LOSS OF CONSCIOUSNESS [None]
